FAERS Safety Report 4595863-3 (Version None)
Quarter: 2005Q1

REPORT INFORMATION
  Report Type: 
  Country: None (occurrence: None)
  Receive Date: 20050302
  Receipt Date: 20050224
  Transmission Date: 20050727
  Serious: Yes (Other)
  Sender: FDA-Public Use
  Company Number: 200511642GDDC

PATIENT
  Age: 68 Year
  Sex: Male
  Weight: 85.4 kg

DRUGS (1)
  1. LANTUS [Suspect]
     Indication: DIABETES MELLITUS NON-INSULIN-DEPENDENT
     Route: 058
     Dates: start: 20040901

REACTIONS (1)
  - MYOCARDIAL INFARCTION [None]
